FAERS Safety Report 5829325-X (Version None)
Quarter: 2008Q3

REPORT INFORMATION
  Report Type: 
  Country: None (occurrence: None)
  Receive Date: 20080731
  Receipt Date: 20080728
  Transmission Date: 20090109
  Serious: Yes (Other)
  Sender: FDA-Public Use
  Company Number: NL-BOEHRINGER INGELHEIM GMBH, GERMANY-2008-DE-01640GD

PATIENT

DRUGS (5)
  1. ACTIVASE [Suspect]
     Indication: ISCHAEMIC STROKE
     Route: 042
  2. ASPIRIN [Suspect]
     Indication: ANTIPLATELET THERAPY
  3. ASPIRIN [Suspect]
     Dosage: 30 - 50 MG
  4. ASPIRIN [Suspect]
     Dosage: 80 - 100 MG
  5. DIPYRIDAMOLE [Suspect]
     Indication: ANTIPLATELET THERAPY

REACTIONS (1)
  - CEREBRAL HAEMORRHAGE [None]
